FAERS Safety Report 5641757-1 (Version None)
Quarter: 2008Q1

REPORT INFORMATION
  Report Type: 
  Country: None (occurrence: None)
  Receive Date: 20080131
  Receipt Date: 20071121
  Transmission Date: 20080703
  Serious: Yes (Other)
  Sender: FDA-Public Use
  Company Number: 163-21880-07110196

PATIENT
  Age: 60 Year
  Sex: Male

DRUGS (6)
  1. REVLIMID [Suspect]
     Indication: MANTLE CELL LYMPHOMA
     Dosage: 20 MG, QD X21 DAYS Q28D, ORAL ; 15 MG, QD X 21 DAYS/28 DAYS, 7 DAY PERIOD REST, ORAL
     Route: 048
     Dates: end: 20070401
  2. REVLIMID [Suspect]
     Indication: MANTLE CELL LYMPHOMA
     Dosage: 20 MG, QD X21 DAYS Q28D, ORAL ; 15 MG, QD X 21 DAYS/28 DAYS, 7 DAY PERIOD REST, ORAL
     Route: 048
     Dates: start: 20070401, end: 20070518
  3. RITUXAN [Suspect]
     Indication: MANTLE CELL LYMPHOMA
  4. ACYCLOVIR [Concomitant]
  5. ASPIRIN [Concomitant]
  6. MULTIVITAMIN (MULTIVITAMIN) [Concomitant]

REACTIONS (1)
  - NEUTROPENIA [None]
